FAERS Safety Report 5004112-3 (Version None)
Quarter: 2006Q2

REPORT INFORMATION
  Report Type: 
  Country: None (occurrence: None)
  Receive Date: 20060511
  Receipt Date: 20060502
  Transmission Date: 20061013
  Serious: Yes (Other)
  Sender: FDA-Public Use
  Company Number: 2006058663

PATIENT
  Age: 89 Year
  Sex: Male
  Weight: 64.4108 kg

DRUGS (8)
  1. LIPITOR [Suspect]
     Indication: BLOOD CHOLESTEROL INCREASED
     Dosage: 10 MG
  2. WARFARIN SODIUM [Concomitant]
  3. LISINOPRIL [Concomitant]
  4. METOLAZONE [Concomitant]
  5. FUROSEMIDE [Concomitant]
  6. CALCIUM GLUCONATE [Concomitant]
  7. POTASSIUM [Concomitant]
  8. DIGOXIN [Concomitant]

REACTIONS (2)
  - INTESTINAL OBSTRUCTION [None]
  - PAIN IN EXTREMITY [None]
